FAERS Safety Report 13285259 (Version 2)
Quarter: 2017Q1

REPORT INFORMATION
  Report Type: Report from Study
  Country: None (occurrence: TR)
  Receive Date: 20170301
  Receipt Date: 20170316
  Transmission Date: 20170428
  Serious: Yes (Hospitalization)
  Sender: FDA-Public Use
  Company Number: TR-ABBVIE-17P-161-1888286-00

PATIENT
  Age: 49 Year
  Sex: Male
  Weight: 75 kg

DRUGS (5)
  1. MONOPRIL [Concomitant]
     Active Substance: FOSINOPRIL SODIUM
     Indication: HYPERTENSION
     Route: 048
     Dates: start: 20130101
  2. MISOL [Concomitant]
     Indication: DEPRESSION
     Route: 048
     Dates: start: 20150101
  3. LYPRE [Concomitant]
     Indication: NEURALGIA
     Route: 048
     Dates: start: 20161201
  4. DUODOPA [Suspect]
     Active Substance: CARBIDOPA\LEVODOPA
     Indication: PARKINSON^S DISEASE
     Dosage: MORNING DOSE: 5.50 ML?CONTINUOUS DOSE: 5.00 ML?EXTRA DOSE: 1.50 ML
     Route: 050
     Dates: start: 20170222
  5. MIRAPEX [Concomitant]
     Active Substance: PRAMIPEXOLE DIHYDROCHLORIDE
     Indication: PARKINSON^S DISEASE
     Route: 048
     Dates: start: 20161101

REACTIONS (1)
  - Hip fracture [Recovered/Resolved]

NARRATIVE: CASE EVENT DATE: 20170224
